FAERS Safety Report 8567114-6 (Version None)
Quarter: 2012Q3

REPORT INFORMATION
  Report Type: 
  Country: None (occurrence: None)
  Receive Date: 20120803
  Receipt Date: 20120730
  Transmission Date: 20120928
  Serious: Yes (Hospitalization, Other)
  Sender: FDA-Public Use
  Company Number: US-009507513-1108USA01234

PATIENT

DRUGS (13)
  1. MK-9278 [Concomitant]
     Dosage: UNK UNK, QD
     Route: 048
     Dates: start: 19940101
  2. CALCIUM (UNSPECIFIED) [Concomitant]
     Dosage: 500 MG, QD
     Dates: start: 19940101
  3. FOSAMAX [Suspect]
     Dosage: 70 MG, QD
     Route: 048
     Dates: end: 20010101
  4. FOSAMAX [Suspect]
     Dosage: 70 MG, QW
     Route: 048
     Dates: start: 20080221, end: 20090109
  5. FOSAMAX [Suspect]
     Indication: OSTEOPOROSIS
     Route: 048
     Dates: start: 19960601
  6. FOSAMAX [Suspect]
     Dosage: 70 MG, UNK
     Route: 048
     Dates: start: 20090110, end: 20090301
  7. FOSAMAX [Suspect]
     Dosage: 70 MG, UNK
     Route: 048
     Dates: start: 20090601, end: 20090701
  8. ESTRATEST [Concomitant]
     Dates: start: 19961001
  9. FOSAMAX [Suspect]
     Dosage: 70 MG, QW
     Route: 048
     Dates: start: 20020101, end: 20070601
  10. FOSAMAX [Suspect]
     Dosage: 70 MG, UNK
     Route: 048
     Dates: start: 20090302, end: 20090531
  11. FOSAMAX [Suspect]
     Dosage: 70 MG, QD
     Route: 048
     Dates: start: 20090718, end: 20090701
  12. FOSAMAX [Suspect]
     Dosage: 70 MG, QW
     Route: 048
     Dates: start: 20070905, end: 20080220
  13. VITAMIN D [Concomitant]
     Dosage: 3000 IU, QD
     Dates: start: 19940101

REACTIONS (35)
  - ANXIETY [None]
  - INAPPROPRIATE SCHEDULE OF DRUG ADMINISTRATION [None]
  - SCOLIOSIS [None]
  - DEFORMITY [None]
  - GASTROOESOPHAGEAL REFLUX DISEASE [None]
  - OSTEOARTHRITIS [None]
  - CARDIOMEGALY [None]
  - LUNG DISORDER [None]
  - ROTATOR CUFF SYNDROME [None]
  - KYPHOSIS [None]
  - X-RAY ABNORMAL [None]
  - CLAVICLE FRACTURE [None]
  - RIB FRACTURE [None]
  - VITAMIN D DEFICIENCY [None]
  - HUMERUS FRACTURE [None]
  - FALL [None]
  - INSOMNIA [None]
  - PULMONARY FIBROSIS [None]
  - SKELETAL INJURY [None]
  - APPENDIX DISORDER [None]
  - OSTEOPENIA [None]
  - BONE PAIN [None]
  - FEMUR FRACTURE [None]
  - DEPRESSION [None]
  - TOOTH DISORDER [None]
  - SCAPULA FRACTURE [None]
  - OSTEONECROSIS OF JAW [None]
  - ABDOMINAL INJURY [None]
  - PELVIC FRACTURE [None]
  - FOOT FRACTURE [None]
  - ANAEMIA POSTOPERATIVE [None]
  - BODY HEIGHT DECREASED [None]
  - SOMNAMBULISM [None]
  - ATELECTASIS [None]
  - MUSCULOSKELETAL CHEST PAIN [None]
